FAERS Safety Report 8865679 (Version 1)
Quarter: 2012Q4

REPORT INFORMATION
  Report Type: 
  Country: US (occurrence: US)
  Receive Date: 20121024
  Receipt Date: 20121024
  Transmission Date: 20130627
  Serious: No
  Sender: FDA-Public Use
  Company Number: US-AMGEN-USASP2012004306

PATIENT
  Sex: Female
  Weight: 14.06 kg

DRUGS (4)
  1. ENBREL [Suspect]
     Indication: PRODUCT USED FOR UNKNOWN INDICATION
     Dosage: 25 mg, qwk
     Route: 058
  2. METHOTREXATE [Concomitant]
     Dosage: 25 mg/ml, UNK
  3. FOLIC ACID [Concomitant]
     Dosage: 200 mug, UNK
  4. POLY-VI-SOL                        /00200301/ [Concomitant]
     Dosage: UNK

REACTIONS (1)
  - Dermatitis diaper [Unknown]
